FAERS Safety Report 20714122 (Version 2)
Quarter: 2022Q2

REPORT INFORMATION
  Report Type: Spontaneous
  Country: ES (occurrence: ES)
  Receive Date: 20220415
  Receipt Date: 20220504
  Transmission Date: 20220721
  Serious: Yes (Hospitalization)
  Sender: FDA-Public Use
  Company Number: ES-CISBIO-2022000185

PATIENT
  Sex: Male

DRUGS (6)
  1. ALBUMIN AGGREGATED [Suspect]
     Active Substance: ALBUMIN AGGREGATED
     Indication: Ventilation/perfusion scan
     Route: 064
     Dates: start: 20211109, end: 20211109
  2. TECHNETIUM TC-99M SODIUM PERTECHNETATE [Suspect]
     Active Substance: TECHNETIUM TC-99M SODIUM PERTECHNETATE
     Indication: Ventilation/perfusion scan
     Dosage: TOTAL
     Route: 064
     Dates: start: 20211109, end: 20211109
  3. LEVOTHYROXINE SODIUM [Concomitant]
     Active Substance: LEVOTHYROXINE SODIUM
     Indication: Hypothyroidism
     Route: 064
  4. ASPIRIN [Concomitant]
     Active Substance: ASPIRIN
     Indication: Pre-eclampsia
     Route: 064
     Dates: start: 20210824, end: 20220127
  5. POTASSIUM IODIDE [Concomitant]
     Active Substance: POTASSIUM IODIDE
     Indication: Pregnancy
     Route: 064
  6. FOLIC ACID [Concomitant]
     Indication: Pregnancy
     Route: 064

REACTIONS (2)
  - Foetal exposure during pregnancy [Recovered/Resolved]
  - Premature baby [Unknown]

NARRATIVE: CASE EVENT DATE: 20211109
